FAERS Safety Report 23528550 (Version 1)
Quarter: 2024Q1

REPORT INFORMATION
  Report Type: Report from Study
  Country: US (occurrence: US)
  Receive Date: 20240215
  Receipt Date: 20240215
  Transmission Date: 20240410
  Serious: No
  Sender: FDA-Public Use
  Company Number: US-ALXN-A202306696

PATIENT
  Sex: Male

DRUGS (1)
  1. SOLIRIS [Suspect]
     Active Substance: ECULIZUMAB
     Indication: Myasthenia gravis
     Dosage: UNK
     Route: 065
     Dates: start: 20230504

REACTIONS (16)
  - Memory impairment [Unknown]
  - Visual impairment [Unknown]
  - Muscular weakness [Unknown]
  - Disturbance in attention [Unknown]
  - Diplopia [Recovering/Resolving]
  - Joint injury [Unknown]
  - Balance disorder [Unknown]
  - Fall [Unknown]
  - Vocal cord disorder [Unknown]
  - Anxiety [Unknown]
  - Depression [Unknown]
  - Haematoma [Not Recovered/Not Resolved]
  - Sleep disorder [Unknown]
  - Asthenia [Not Recovered/Not Resolved]
  - Fatigue [Not Recovered/Not Resolved]
  - Mobility decreased [Unknown]
